FAERS Safety Report 6981664-5 (Version None)
Quarter: 2010Q3

REPORT INFORMATION
  Report Type: 
  Country: None (occurrence: None)
  Receive Date: 20100914
  Receipt Date: 20090826
  Transmission Date: 20110219
  Serious: Yes (Other)
  Sender: FDA-Public Use
  Company Number: US-PFIZER INC-2009261608

PATIENT
  Age: 57 Year
  Sex: Female
  Weight: 62.585 kg

DRUGS (11)
  1. LYRICA [Suspect]
     Indication: FIBROMYALGIA
     Dosage: 150 MG, 2X/DAY
     Route: 048
     Dates: end: 20090101
  2. LYRICA [Suspect]
     Dosage: 150 MG, 1X/DAY
     Dates: start: 20090101, end: 20090819
  3. LYRICA [Suspect]
     Dosage: 75 MG, 2X/DAY
     Dates: start: 20090819
  4. INSULIN [Concomitant]
     Indication: DIABETES MELLITUS
     Dosage: UNK
  5. ENALAPRIL [Concomitant]
     Dosage: UNK
  6. CALCIUM CARBONATE [Concomitant]
     Indication: MINERAL SUPPLEMENTATION
     Dosage: UNK
  7. SYNTHROID [Concomitant]
     Indication: THYROID DISORDER
     Dosage: UNK
  8. ASCORBIC ACID [Concomitant]
     Dosage: UNK
  9. VITAMIN B6 [Concomitant]
     Dosage: UNK
  10. MULTI-VITAMINS [Concomitant]
     Dosage: UNK
  11. LOVAZA [Concomitant]
     Dosage: UNK

REACTIONS (7)
  - BLOOD GLUCOSE DECREASED [None]
  - CONFUSIONAL STATE [None]
  - DYSURIA [None]
  - FEELING ABNORMAL [None]
  - FLUID RETENTION [None]
  - INSOMNIA [None]
  - MUSCLE TWITCHING [None]
